FAERS Safety Report 8296819-X (Version None)
Quarter: 2012Q2

REPORT INFORMATION
  Report Type: 
  Country: None (occurrence: None)
  Receive Date: 20120419
  Receipt Date: 20120413
  Transmission Date: 20120825
  Serious: Yes (Other)
  Sender: FDA-Public Use
  Company Number: FR-AMGEN-FRASP2012016128

PATIENT
  Age: 36 Year
  Sex: Female
  Weight: 65 kg

DRUGS (6)
  1. NEULASTA [Suspect]
     Indication: CHEMOTHERAPY
     Dosage: 6 MG, QWK
     Route: 058
     Dates: start: 20110905, end: 20110905
  2. DOCETAXEL [Concomitant]
     Indication: BREAST CANCER
     Dosage: 160 MG, ONE TIME DOSE
     Route: 042
     Dates: start: 20110905, end: 20110905
  3. TRASTUZUMAB [Concomitant]
     Indication: BREAST CANCER
     Dosage: 360 MG, QWK
     Route: 042
     Dates: start: 20110905, end: 20110905
  4. SOLU-MEDROL [Concomitant]
     Indication: BREAST CANCER
     Dosage: 80 MG, ONE TIME DOSE
     Route: 042
     Dates: start: 20110905, end: 20110905
  5. ONDANSETRON [Concomitant]
     Indication: BREAST CANCER
     Dosage: 8 MG, ONE TIME DOSE
     Route: 042
     Dates: start: 20110905, end: 20110905
  6. NEORECORMON [Concomitant]
     Dosage: 3000 IU, UNK
     Route: 058
     Dates: start: 20110905, end: 20110905

REACTIONS (1)
  - HAEMOLYTIC ANAEMIA [None]
